FAERS Safety Report 6520344-7 (Version None)
Quarter: 2009Q4

REPORT INFORMATION
  Report Type: 
  Country: None (occurrence: None)
  Receive Date: 20091229
  Receipt Date: 20091218
  Transmission Date: 20100525
  Serious: Yes (Hospitalization)
  Sender: FDA-Public Use
  Company Number: DK-BAYER-200943710GPV

PATIENT
  Age: 62 Year
  Sex: Female
  Weight: 92 kg

DRUGS (5)
  1. FLUDARABINE [Suspect]
     Indication: CHRONIC LYMPHOCYTIC LEUKAEMIA
     Route: 048
     Dates: start: 20080407, end: 20080827
  2. CYCLOPHOSPHAMIDE [Suspect]
     Indication: CHRONIC LYMPHOCYTIC LEUKAEMIA
     Route: 048
     Dates: start: 20080407, end: 20080827
  3. GIMONCOP [Concomitant]
     Indication: HYPERCHOLESTEROLAEMIA
     Route: 048
     Dates: start: 20070529, end: 20091116
  4. ENALAPRIL [Concomitant]
     Indication: HYPERTENSION
     Route: 048
     Dates: start: 20070529, end: 20091116
  5. PINEX [Concomitant]
     Indication: PAIN
     Route: 048
     Dates: start: 20070529, end: 20091116

REACTIONS (1)
  - MALIGNANT MELANOMA [None]
